FAERS Safety Report 8908556 (Version 1)
Quarter: 2012Q4

REPORT INFORMATION
  Report Type: 
  Country: US (occurrence: US)
  Receive Date: 20121114
  Receipt Date: 20121114
  Transmission Date: 20130627
  Serious: Yes (Other)
  Sender: FDA-Public Use
  Company Number: US-ELI_LILLY_AND_COMPANY-US201211001673

PATIENT
  Age: 41 Year
  Sex: Female

DRUGS (3)
  1. CYMBALTA [Suspect]
     Indication: MAJOR DEPRESSION
     Dosage: 60 mg, UNK
     Dates: start: 20120801
  2. TRAZODONE [Concomitant]
  3. AMBIEN CR [Concomitant]

REACTIONS (2)
  - Angioedema [Unknown]
  - Rash [Unknown]
